FAERS Safety Report 26213252 (Version 1)
Quarter: 2025Q4

REPORT INFORMATION
  Report Type: Spontaneous
  Country: US (occurrence: US)
  Receive Date: 20251230
  Receipt Date: 20251230
  Transmission Date: 20260118
  Serious: Yes (Life-Threatening, Hospitalization)
  Sender: MYLAN
  Company Number: US-MYLANLABS-2025M1110112

PATIENT
  Age: 51 Year
  Sex: Male

DRUGS (6)
  1. METOPROLOL SUCCINATE [Suspect]
     Active Substance: METOPROLOL SUCCINATE
     Indication: Hypertension
     Dosage: 200 MILLIGRAM; THREE EXTRA DOSES
  2. NOREPINEPHRINE [Suspect]
     Active Substance: NOREPINEPHRINE
     Indication: Haemodynamic instability
     Dosage: UNK
  3. EPINEPHRINE [Suspect]
     Active Substance: EPINEPHRINE
     Indication: Haemodynamic instability
     Dosage: UNK
  4. GLUCAGON [Suspect]
     Active Substance: GLUCAGON
     Indication: Haemodynamic instability
     Dosage: UNK
  5. DOBUTAMINE [Suspect]
     Active Substance: DOBUTAMINE HYDROCHLORIDE
     Indication: Haemodynamic instability
     Dosage: UNK
  6. INSULIN NOS [Suspect]
     Active Substance: INSULIN NOS
     Indication: Haemodynamic instability
     Dosage: UNK

REACTIONS (11)
  - Toxicity to various agents [Unknown]
  - Nodal arrhythmia [Unknown]
  - Acute kidney injury [Unknown]
  - Renal tubular necrosis [Unknown]
  - Haemodynamic instability [Recovering/Resolving]
  - Electrolyte imbalance [Unknown]
  - Acute respiratory failure [Unknown]
  - Hypervolaemia [Unknown]
  - Overdose [Unknown]
  - Drug ineffective [Unknown]
  - Product prescribing issue [Unknown]
